FAERS Safety Report 14859750 (Version 3)
Quarter: 2018Q2

REPORT INFORMATION
  Report Type: Spontaneous
  Country: US (occurrence: US)
  Receive Date: 20180508
  Receipt Date: 20180516
  Transmission Date: 20180711
  Serious: Yes (Other)
  Sender: FDA-Public Use
  Company Number: US-PFIZER INC-2018188191

PATIENT
  Age: 32 Year
  Sex: Female
  Weight: 59 kg

DRUGS (2)
  1. NARDIL [Suspect]
     Active Substance: PHENELZINE SULFATE
     Dosage: 45 MG, 2X/DAY
     Route: 048
     Dates: start: 2000, end: 2005
  2. NARDIL [Suspect]
     Active Substance: PHENELZINE SULFATE
     Indication: DEPRESSION
     Dosage: 15 MG, UNK
     Route: 048

REACTIONS (5)
  - Drug ineffective [Unknown]
  - Blood pressure decreased [Unknown]
  - Intentional product misuse [Unknown]
  - Loss of consciousness [Unknown]
  - Product quality issue [Unknown]

NARRATIVE: CASE EVENT DATE: 2003
